FAERS Safety Report 21291772 (Version 4)
Quarter: 2024Q1

REPORT INFORMATION
  Report Type: Report from Study
  Country: US (occurrence: US)
  Receive Date: 20220903
  Receipt Date: 20240321
  Transmission Date: 20240409
  Serious: Yes (Hospitalization, Other)
  Sender: FDA-Public Use
  Company Number: US-ABBVIE-22K-163-4524969-00

PATIENT
  Sex: Female
  Weight: 62.595 kg

DRUGS (4)
  1. RINVOQ [Suspect]
     Active Substance: UPADACITINIB
     Indication: Rheumatoid arthritis
     Dosage: FORM STRENGTH: 15 MILLIGRAM
     Route: 048
  2. RINVOQ [Suspect]
     Active Substance: UPADACITINIB
     Indication: Rheumatoid arthritis
     Dosage: FORM STRENGTH: 15 MILLIGRAM
     Route: 048
  3. RINVOQ [Suspect]
     Active Substance: UPADACITINIB
     Indication: Rheumatoid arthritis
     Dosage: FORM STRENGTH: 15 MILLIGRAM
     Route: 048
     Dates: start: 20211018, end: 202208
  4. JANSSEN COVID-19 VACCINE [Concomitant]
     Active Substance: AD26.COV2.S
     Indication: COVID-19 immunisation
     Dosage: TIME INTERVAL: 1 TOTAL
     Route: 030

REACTIONS (10)
  - Myocardial infarction [Unknown]
  - Blood cholesterol increased [Not Recovered/Not Resolved]
  - Surgery [Not Recovered/Not Resolved]
  - Peripheral swelling [Recovered/Resolved]
  - Myocardial infarction [Recovered/Resolved]
  - Pulse abnormal [Recovering/Resolving]
  - Rheumatoid arthritis [Recovering/Resolving]
  - Glucose tolerance impaired [Not Recovered/Not Resolved]
  - Pneumonia [Recovering/Resolving]
  - Memory impairment [Unknown]

NARRATIVE: CASE EVENT DATE: 20220101
